FAERS Safety Report 24982380 (Version 1)
Quarter: 2025Q1

REPORT INFORMATION
  Report Type: Spontaneous
  Country: US (occurrence: US)
  Receive Date: 20250218
  Receipt Date: 20250218
  Transmission Date: 20250409
  Serious: Yes (Death, Other)
  Sender: AMGEN
  Company Number: US-AMGEN-USASP2025028870

PATIENT

DRUGS (3)
  1. RITUXIMAB [Suspect]
     Active Substance: RITUXIMAB
     Indication: Hepatoblastoma
     Route: 065
  2. RITUXIMAB [Suspect]
     Active Substance: RITUXIMAB
     Indication: Congenital absence of bile ducts
  3. SULFAMETHOXAZOLE\TRIMETHOPRIM [Concomitant]
     Active Substance: SULFAMETHOXAZOLE\TRIMETHOPRIM
     Indication: Prophylaxis

REACTIONS (30)
  - Death [Fatal]
  - Neoplasm malignant [Fatal]
  - Post transplant lymphoproliferative disorder [Fatal]
  - Cardiopulmonary failure [Fatal]
  - Multiple organ dysfunction syndrome [Fatal]
  - Necrotising colitis [Unknown]
  - Peritonitis [Unknown]
  - Wound infection [Unknown]
  - Cholangitis [Unknown]
  - Clostridium difficile infection [Unknown]
  - Abdominal abscess [Unknown]
  - Enterococcal infection [Unknown]
  - Lower respiratory tract infection [Unknown]
  - Febrile neutropenia [Unknown]
  - Cytomegalovirus infection [Unknown]
  - Human herpesvirus 6 infection [Unknown]
  - Cellulitis [Unknown]
  - Otitis media acute [Unknown]
  - Oral herpes [Unknown]
  - Off label use [Unknown]
  - Staphylococcal infection [Unknown]
  - Enterobacter infection [Unknown]
  - Viral test positive [Unknown]
  - Device related infection [Unknown]
  - Haematological infection [Unknown]
  - Epstein-Barr virus infection [Unknown]
  - Gastrointestinal infection [Unknown]
  - Respiratory tract infection viral [Unknown]
  - Urinary tract infection [Unknown]
  - Infection [Unknown]
